FAERS Safety Report 25301740 (Version 1)
Quarter: 2025Q2

REPORT INFORMATION
  Report Type: Spontaneous
  Country: NO (occurrence: NO)
  Receive Date: 20250512
  Receipt Date: 20250512
  Transmission Date: 20250717
  Serious: Yes (Hospitalization)
  Sender: ORGANON
  Company Number: None

PATIENT
  Age: 37 Year
  Sex: Female
  Weight: 65 kg

DRUGS (2)
  1. ELOCON [Suspect]
     Active Substance: MOMETASONE FUROATE
     Indication: Eczema
     Dosage: TWICE DAILY (WITH SHORT BREAKS) FOR SEVERAL YEARS
     Route: 003
     Dates: start: 201809, end: 202309
  2. CLOBETASOL PROPIONATE [Suspect]
     Active Substance: CLOBETASOL PROPIONATE
     Indication: Eczema
     Dosage: TWICE DAILY
     Dates: start: 202201, end: 202309

REACTIONS (6)
  - Topical steroid withdrawal reaction [Recovering/Resolving]
  - Swelling face [Recovering/Resolving]
  - Insomnia [Recovering/Resolving]
  - Sensitive skin [Unknown]
  - Impaired quality of life [Unknown]
  - Maternal exposure during pregnancy [Unknown]

NARRATIVE: CASE EVENT DATE: 20231001
